FAERS Safety Report 5702283-4 (Version None)
Quarter: 2008Q2

REPORT INFORMATION
  Report Type: 
  Country: None (occurrence: None)
  Receive Date: 20080411
  Receipt Date: 20080331
  Transmission Date: 20081010
  Serious: Yes (Hospitalization, Disabling)
  Sender: FDA-Public Use
  Company Number: TR-AMGEN-US204039

PATIENT
  Age: 50 Year
  Sex: Male
  Weight: 62 kg

DRUGS (4)
  1. ENBREL [Suspect]
     Indication: RHEUMATOID ARTHRITIS
     Route: 058
     Dates: start: 20060301, end: 20061101
  2. INDOMETHACIN [Concomitant]
     Route: 048
     Dates: start: 20040301
  3. LEFLUNOMIDE [Concomitant]
     Route: 048
     Dates: start: 20040301
  4. HYDROXYCHLOROQUINE [Concomitant]
     Route: 048
     Dates: start: 20040301

REACTIONS (1)
  - NEURALGIC AMYOTROPHY [None]
